FAERS Safety Report 14482511 (Version 17)
Quarter: 2019Q1

REPORT INFORMATION
  Report Type: Spontaneous
  Country: HU (occurrence: HU)
  Receive Date: 20180202
  Receipt Date: 20190103
  Transmission Date: 20190417
  Serious: Yes (Other)
  Sender: FDA-Public Use
  Company Number: PHHY2018HU012831

PATIENT
  Age: 18 Year
  Sex: Female

DRUGS (13)
  1. TOBRAMYCIN. [Suspect]
     Active Substance: TOBRAMYCIN
     Indication: OCULAR ROSACEA
     Dosage: UNK
     Route: 065
  2. VITAMIN A PALMITATE [Suspect]
     Active Substance: VITAMIN A PALMITATE
     Indication: OCULAR ROSACEA
     Route: 065
  3. INDOMETACIN [Suspect]
     Active Substance: INDOMETHACIN
     Indication: OCULAR ROSACEA
     Route: 065
  4. DEXAMETHASONE. [Suspect]
     Active Substance: DEXAMETHASONE
     Indication: OCULAR ROSACEA
     Route: 065
  5. FLUOROMETHOLONE. [Suspect]
     Active Substance: FLUOROMETHOLONE
     Indication: OCULAR ROSACEA
     Dosage: UNK
     Route: 065
  6. BETAMETHASONE. [Suspect]
     Active Substance: BETAMETHASONE
     Indication: OCULAR ROSACEA
     Dosage: UNK
     Route: 065
  7. METRONIDAZOLE. [Suspect]
     Active Substance: METRONIDAZOLE
     Indication: OCULAR ROSACEA
     Dosage: UNK
     Route: 065
  8. TETRACYCLINE [Suspect]
     Active Substance: TETRACYCLINE
     Indication: OCULAR ROSACEA
     Route: 065
  9. FUSIDIC ACID [Suspect]
     Active Substance: FUSIDIC ACID
     Indication: OCULAR ROSACEA
     Route: 065
  10. ERYTHROMYCIN. [Suspect]
     Active Substance: ERYTHROMYCIN
     Indication: OCULAR ROSACEA
     Dosage: UNK
     Route: 065
  11. ZINC ACETATE [Suspect]
     Active Substance: ZINC ACETATE
     Indication: OCULAR ROSACEA
     Dosage: UNK
     Route: 065
  12. DOXYCYCLINE. [Suspect]
     Active Substance: DOXYCYCLINE
     Indication: OCULAR ROSACEA
     Route: 065
  13. OXYTETRACYCLINE [Suspect]
     Active Substance: OXYTETRACYCLINE
     Indication: OCULAR ROSACEA
     Dosage: UNK
     Route: 065

REACTIONS (7)
  - Pregnancy [Unknown]
  - Off label use [Unknown]
  - Corneal neovascularisation [Recovered/Resolved]
  - Maternal exposure during pregnancy [Unknown]
  - Corneal perforation [Recovered/Resolved]
  - Product use in unapproved indication [Unknown]
  - Visual impairment [Recovered/Resolved]
